FAERS Safety Report 21120998 (Version 3)
Quarter: 2022Q3

REPORT INFORMATION
  Report Type: Spontaneous
  Country: DK (occurrence: DK)
  Receive Date: 20220722
  Receipt Date: 20220816
  Transmission Date: 20221026
  Serious: Yes (Life-Threatening, Hospitalization)
  Sender: FDA-Public Use
  Company Number: DK-BAYER-2022P007744

PATIENT
  Age: 34 Year
  Sex: Female
  Weight: 65 kg

DRUGS (1)
  1. MIRENA [Suspect]
     Active Substance: LEVONORGESTREL
     Indication: Contraception
     Dosage: 20?G/DAY
     Route: 015
     Dates: start: 20180307

REACTIONS (6)
  - Ectopic pregnancy [Recovered/Resolved]
  - Intra-abdominal haemorrhage [None]
  - Ruptured ectopic pregnancy [None]
  - Drug ineffective [None]
  - Abdominal pain lower [Recovered/Resolved]
  - Breast discomfort [Recovered/Resolved]

NARRATIVE: CASE EVENT DATE: 20220712
